FAERS Safety Report 4615822-1 (Version None)
Quarter: 2005Q1

REPORT INFORMATION
  Report Type: 
  Country: None (occurrence: None)
  Receive Date: 20050309
  Receipt Date: 20040305
  Transmission Date: 20050727
  Serious: Yes (Disabling)
  Sender: FDA-Public Use
  Company Number: 2004001646

PATIENT
  Age: 85 Year
  Sex: Female
  Weight: 41.7309 kg

DRUGS (7)
  1. PROCARDIA XL [Suspect]
     Indication: HYPERTENSION
     Dosage: 90 MG (DAILY), ORAL
     Route: 048
     Dates: start: 20031022, end: 20030101
  2. ATENOLOL [Concomitant]
  3. DOXAZOSNI MESILATE (DOXAZOSIN MESILATE) [Concomitant]
  4. VALSARTAN [Concomitant]
  5. ESOMEPRAZOLE (ESOMEPRAZOLE) [Concomitant]
  6. DIGOXIN [Concomitant]
  7. CALCITONIN, SALMON (CALCITONIN, SALMON) [Concomitant]

REACTIONS (6)
  - HEADACHE [None]
  - HYPERTENSION [None]
  - MALAISE [None]
  - NAUSEA [None]
  - OEDEMA PERIPHERAL [None]
  - PALPITATIONS [None]
